FAERS Safety Report 4917669-5 (Version None)
Quarter: 2006Q1

REPORT INFORMATION
  Report Type: 
  Country: None (occurrence: None)
  Receive Date: 20060221
  Receipt Date: 20060111
  Transmission Date: 20060701
  Serious: Yes (Hospitalization, Other)
  Sender: FDA-Public Use
  Company Number: PHBS2006JP00836

PATIENT
  Age: 86 Year
  Sex: Male
  Weight: 35 kg

DRUGS (7)
  1. LASIX [Interacting]
     Indication: CARDIAC FAILURE CHRONIC
     Dosage: 30 MG/DAY
     Route: 048
     Dates: start: 20050627, end: 20051025
  2. RENIVACE [Concomitant]
     Indication: CARDIAC FAILURE CHRONIC
     Dosage: 5 MG/DAY
     Route: 048
     Dates: start: 20050627, end: 20051025
  3. WARFARIN [Concomitant]
     Indication: CARDIAC FAILURE CHRONIC
     Dosage: 1 MG/DAY
     Route: 048
     Dates: start: 20050627, end: 20051025
  4. MUCOSTA [Concomitant]
     Indication: GASTRIC ULCER
     Dosage: 300 MG/DAY
     Route: 048
     Dates: start: 20050627, end: 20051025
  5. TEGRETOL [Suspect]
     Indication: EXCITABILITY
     Dosage: 300 MG, QD
     Route: 048
     Dates: start: 20050702, end: 20050703
  6. GRAMALIL [Concomitant]
     Indication: EXCITABILITY
     Dosage: 25 MG/DAY
     Route: 048
     Dates: start: 20050627, end: 20050703
  7. SERENACE [Suspect]
     Indication: EXCITABILITY
     Dosage: 5 MG, QD
     Route: 041
     Dates: start: 20050701, end: 20050701

REACTIONS (17)
  - ALANINE AMINOTRANSFERASE INCREASED [None]
  - ANTICONVULSANT DRUG LEVEL INCREASED [None]
  - ASPARTATE AMINOTRANSFERASE INCREASED [None]
  - ATRIAL FIBRILLATION [None]
  - BLOOD BILIRUBIN INCREASED [None]
  - BLOOD CREATININE INCREASED [None]
  - BLOOD LACTATE DEHYDROGENASE INCREASED [None]
  - BLOOD SODIUM DECREASED [None]
  - BLOOD UREA INCREASED [None]
  - BRADYCARDIA [None]
  - CONVULSION [None]
  - DEPRESSED LEVEL OF CONSCIOUSNESS [None]
  - DRUG INTERACTION [None]
  - HEPATIC FUNCTION ABNORMAL [None]
  - HYPERKALAEMIA [None]
  - PYREXIA [None]
  - THERAPEUTIC AGENT TOXICITY [None]
